FAERS Safety Report 24637218 (Version 1)
Quarter: 2024Q4

REPORT INFORMATION
  Report Type: Spontaneous
  Country: CA (occurrence: CA)
  Receive Date: 20241119
  Receipt Date: 20241119
  Transmission Date: 20250114
  Serious: Yes (Other)
  Sender: TAKEDA
  Company Number: CA-TAKEDA-2024TUS114903

PATIENT
  Age: 78 Year
  Sex: Female

DRUGS (3)
  1. VYVANSE [Suspect]
     Active Substance: LISDEXAMFETAMINE DIMESYLATE
     Indication: Attention deficit hyperactivity disorder
     Dosage: 70 MILLIGRAM
  2. VYVANSE [Suspect]
     Active Substance: LISDEXAMFETAMINE DIMESYLATE
     Dosage: 30 MILLIGRAM
  3. DEXEDRINE [Concomitant]
     Active Substance: DEXTROAMPHETAMINE SULFATE
     Dosage: UNK

REACTIONS (8)
  - Cardiac flutter [Unknown]
  - Chest discomfort [Unknown]
  - Drug titration error [Unknown]
  - Therapeutic reaction time decreased [Unknown]
  - Impaired quality of life [Unknown]
  - Dyspnoea exertional [Unknown]
  - Chest pain [Unknown]
  - Somnolence [Unknown]
